FAERS Safety Report 9147663 (Version 1)
Quarter: 2013Q1

REPORT INFORMATION
  Report Type: Spontaneous
  Country: GB (occurrence: GB)
  Receive Date: 20130307
  Receipt Date: 20130307
  Transmission Date: 20140127
  Serious: Yes (Hospitalization)
  Sender: FDA-Public Use
  Company Number: GB-ASTRAZENECA-2013SE13104

PATIENT
  Sex: 0

DRUGS (1)
  1. QUETIAPINE [Suspect]
     Route: 048

REACTIONS (1)
  - Abnormal weight gain [Unknown]
